FAERS Safety Report 19495800 (Version 1)
Quarter: 2021Q3

REPORT INFORMATION
  Report Type: Spontaneous
  Country: US (occurrence: US)
  Receive Date: 20210702
  Receipt Date: 20210702
  Transmission Date: 20211014
  Serious: No
  Sender: FDA-Public Use
  Company Number: None

PATIENT
  Age: 66 Year
  Sex: Female
  Weight: 76 kg

DRUGS (1)
  1. TRUXIMA [Suspect]
     Active Substance: RITUXIMAB-ABBS

REACTIONS (3)
  - Infusion related reaction [None]
  - Oropharyngeal pain [None]
  - Ear pruritus [None]

NARRATIVE: CASE EVENT DATE: 20210521
